FAERS Safety Report 21334740 (Version 1)
Quarter: 2022Q3

REPORT INFORMATION
  Report Type: Other
  Country: US (occurrence: US)
  Receive Date: 20220914
  Receipt Date: 20220914
  Transmission Date: 20221027
  Serious: No
  Sender: FDA-Public Use
  Company Number: US-LEADIANT BIOSCIENCES INC-2022STPI000129

PATIENT
  Sex: Female

DRUGS (1)
  1. MATULANE [Suspect]
     Active Substance: PROCARBAZINE HYDROCHLORIDE
     Indication: Brain cancer metastatic
     Dosage: 50 MILLIGRAM, TAKE 5 CAPSULES ( 250 MG TOTAL) FOR ONE DOSE EVERY 4 WEEK
     Route: 048
     Dates: start: 20220408

REACTIONS (1)
  - Nausea [Unknown]
